FAERS Safety Report 16351292 (Version 1)
Quarter: 2019Q2

REPORT INFORMATION
  Report Type: Spontaneous
  Country: FR (occurrence: FR)
  Receive Date: 20190524
  Receipt Date: 20190524
  Transmission Date: 20190711
  Serious: Yes (Hospitalization)
  Sender: FDA-Public Use
  Company Number: FR-AUROBINDO-AUR-APL-2019-029918

PATIENT

DRUGS (10)
  1. AMIKACIN. [Suspect]
     Active Substance: AMIKACIN
     Indication: SERRATIA SEPSIS
     Dosage: 250 MILLIGRAM, ONCE A DAY
     Route: 042
     Dates: start: 20190222, end: 20190304
  2. ZYMAD [Concomitant]
     Active Substance: CHOLECALCIFEROL
     Indication: PRODUCT USED FOR UNKNOWN INDICATION
     Dosage: UNK
     Route: 065
  3. BROMAZEPAM [Concomitant]
     Active Substance: BROMAZEPAM
     Indication: PRODUCT USED FOR UNKNOWN INDICATION
     Dosage: UNK
     Route: 065
  4. CISPLATINE ACCORD [Suspect]
     Active Substance: CISPLATIN
     Indication: PROSTATE CANCER
     Dosage: 37 MILLIGRAM
     Route: 042
     Dates: start: 20190211, end: 20190215
  5. BLEOMYCINE BELLON [Interacting]
     Active Substance: BLEOMYCIN SULFATE
     Indication: PROSTATE CANCER
     Dosage: 30 MILLIGRAM, 15 DAYS
     Route: 042
     Dates: start: 20190211, end: 20190225
  6. GAVISCON [Concomitant]
     Active Substance: ALUMINUM HYDROXIDE\MAGNESIUM CARBONATE
     Indication: PRODUCT USED FOR UNKNOWN INDICATION
     Dosage: UNK
     Route: 065
  7. ZARZIO [Interacting]
     Active Substance: FILGRASTIM
     Indication: NEUTROPENIA
     Dosage: 1 DOSAGE FORM, ONCE A DAY
     Route: 058
     Dates: start: 20190223, end: 20190226
  8. SPECIAFOLDINE [Concomitant]
     Active Substance: FOLIC ACID
     Indication: PRODUCT USED FOR UNKNOWN INDICATION
     Dosage: UNK
     Route: 065
  9. CIPROFLOXACIN. [Suspect]
     Active Substance: CIPROFLOXACIN
     Indication: SERRATIA SEPSIS
     Dosage: 1000 MILLIGRAM, ONCE A DAY
     Route: 048
     Dates: start: 20190222, end: 20190304
  10. ETOPOSIDE MYLAN [Suspect]
     Active Substance: ETOPOSIDE
     Indication: PROSTATE CANCER
     Dosage: 184 MILLIGRAM, CYCLICAL
     Route: 042
     Dates: start: 20190211

REACTIONS (1)
  - Lung disorder [Not Recovered/Not Resolved]

NARRATIVE: CASE EVENT DATE: 20190304
